FAERS Safety Report 11767732 (Version 3)
Quarter: 2015Q4

REPORT INFORMATION
  Report Type: Spontaneous
  Country: US (occurrence: US)
  Receive Date: 20151123
  Receipt Date: 20151123
  Transmission Date: 20160304
  Serious: No
  Sender: FDA-Public Use
  Company Number: US-APOTEX-2015AP012618

PATIENT

DRUGS (1)
  1. AZELASTINE HYDROCHLORIDE NASAL SOLUTION (NASAL SPRAY) [Suspect]
     Active Substance: AZELASTINE HYDROCHLORIDE
     Indication: PRODUCT USED FOR UNKNOWN INDICATION
     Dosage: UNK, QD ABOUT 3-5PM
     Route: 065

REACTIONS (5)
  - Pruritus [Unknown]
  - Cough [Unknown]
  - Insomnia [Unknown]
  - Drug ineffective [Unknown]
  - Oropharyngeal pain [Unknown]
